FAERS Safety Report 5650496-2 (Version None)
Quarter: 2008Q1

REPORT INFORMATION
  Report Type: 
  Country: None (occurrence: None)
  Receive Date: 20080304
  Receipt Date: 20080304
  Transmission Date: 20080703
  Serious: Yes (Life-Threatening, Hospitalization)
  Sender: FDA-Public Use
  Company Number: None

PATIENT
  Age: 72 Year
  Sex: Female

DRUGS (1)
  1. IXABEPILONE [Suspect]
     Dosage: 54 MG ONCE IV
     Route: 042
     Dates: start: 20080215, end: 20080215

REACTIONS (3)
  - HYPOTENSION [None]
  - LARYNGOSPASM [None]
  - RESPIRATORY ARREST [None]
